FAERS Safety Report 7032089-8 (Version None)
Quarter: 2010Q4

REPORT INFORMATION
  Report Type: 
  Country: None (occurrence: None)
  Receive Date: 20101007
  Receipt Date: 20100126
  Transmission Date: 20110411
  Serious: No
  Sender: FDA-Public Use
  Company Number: US-KINGPHARMUSA00001-K201000098

PATIENT
  Age: 44 Year
  Sex: Female
  Weight: 68.027 kg

DRUGS (1)
  1. SONATA [Suspect]
     Indication: INSOMNIA
     Dosage: 20 MG, QHS
     Route: 048

REACTIONS (1)
  - DRUG INEFFECTIVE [None]
